FAERS Safety Report 8544689-4 (Version None)
Quarter: 2012Q3

REPORT INFORMATION
  Report Type: 
  Country: None (occurrence: None)
  Receive Date: 20120727
  Receipt Date: 20120725
  Transmission Date: 20120928
  Serious: Yes (Life-Threatening)
  Sender: FDA-Public Use
  Company Number: GB-BRISTOL-MYERS SQUIBB COMPANY-16800336

PATIENT
  Age: 51 Year
  Sex: Male

DRUGS (3)
  1. ONGLYZA [Suspect]
     Indication: DIABETES MELLITUS
     Route: 048
     Dates: start: 20120702, end: 20120707
  2. VITAMIN B COMPLEX CAP [Concomitant]
     Indication: HYPOVITAMINOSIS
     Dosage: 1-2, THREE TIMES A DAY. VITAMIN B COMPOUND STRONG
     Route: 048
     Dates: start: 20120702
  3. METFORMIN HYDROCHLORIDE [Concomitant]
     Indication: DIABETES MELLITUS
     Dosage: MODIFIED-RELEASE TABLET
     Route: 048
     Dates: start: 20120430

REACTIONS (5)
  - HEMIPLEGIA [None]
  - INSOMNIA [None]
  - DYSPNOEA [None]
  - PYREXIA [None]
  - NIGHT SWEATS [None]
